FAERS Safety Report 9396677 (Version 1)
Quarter: 2013Q3

REPORT INFORMATION
  Report Type: Spontaneous
  Country: US (occurrence: US)
  Receive Date: 20130712
  Receipt Date: 20130712
  Transmission Date: 20140515
  Serious: Yes (Other)
  Sender: FDA-Public Use
  Company Number: US-ROCHE-1241771

PATIENT
  Age: 83 Year
  Sex: Male

DRUGS (2)
  1. ROCEPHIN [Suspect]
     Indication: SWELLING FACE
     Route: 058
     Dates: start: 20130307, end: 20130308
  2. PENICILLIN VK [Concomitant]
     Indication: SWELLING FACE
     Route: 048
     Dates: start: 20130303, end: 20130314

REACTIONS (3)
  - Neuralgia [Not Recovered/Not Resolved]
  - Nervous system disorder [Not Recovered/Not Resolved]
  - Cranial nerve disorder [Not Recovered/Not Resolved]
